FAERS Safety Report 9885608 (Version 1)
Quarter: 2014Q1

REPORT INFORMATION
  Report Type: Spontaneous
  Country: US (occurrence: US)
  Receive Date: 20140210
  Receipt Date: 20140210
  Transmission Date: 20141002
  Serious: No
  Sender: FDA-Public Use
  Company Number: US-GILEAD-2011-0048142

PATIENT
  Age: 41 Year
  Sex: Female

DRUGS (1)
  1. VIREAD [Suspect]
     Indication: HIV INFECTION
     Dosage: UNK
     Dates: end: 2011

REACTIONS (1)
  - Unevaluable event [Unknown]
